FAERS Safety Report 5979894-4 (Version None)
Quarter: 2008Q4

REPORT INFORMATION
  Report Type: 
  Country: None (occurrence: None)
  Receive Date: 20081126
  Receipt Date: 20081112
  Transmission Date: 20090506
  Serious: Yes (Hospitalization)
  Sender: FDA-Public Use
  Company Number: DSM-2008-01008

PATIENT
  Age: 36 Year
  Sex: Male

DRUGS (2)
  1. VOTUM PLUS (HYDROCHLOROTHIAZIDE, OLMESARTAN MEDOXOMIL) (TABLET) (HYDRO [Suspect]
     Indication: HYPERTENSION
     Dosage: ORAL
     Route: 048
     Dates: start: 20060530, end: 20070201
  2. CALCIMAGON-D3 (COLECALCIFEROL, CALCIUM CARBONATE) (COLECALCIFEROL, CAL [Concomitant]

REACTIONS (4)
  - ECZEMA [None]
  - PRURITUS [None]
  - RASH ERYTHEMATOUS [None]
  - TOXIC SKIN ERUPTION [None]
